FAERS Safety Report 8418713-3 (Version None)
Quarter: 2012Q2

REPORT INFORMATION
  Report Type: 
  Country: None (occurrence: None)
  Receive Date: 20120607
  Receipt Date: 20120531
  Transmission Date: 20120825
  Serious: Yes (Hospitalization)
  Sender: FDA-Public Use
  Company Number: AR-GENZYME-CAMP-1002195

PATIENT
  Sex: Male
  Weight: 87.4 kg

DRUGS (4)
  1. LAMOTRIGINE [Concomitant]
     Indication: PRODUCT USED FOR UNKNOWN INDICATION
     Dosage: 100 MG, BID
     Route: 048
     Dates: start: 20100731
  2. ALEMTUZUMAB [Suspect]
     Dosage: 24 MG, QDX5
     Route: 042
     Dates: start: 20090630, end: 20090704
  3. QUETIAPINE [Concomitant]
     Indication: PRODUCT USED FOR UNKNOWN INDICATION
     Dosage: 25 MG, ONCE
     Route: 048
     Dates: start: 20110620
  4. ALEMTUZUMAB [Suspect]
     Indication: MULTIPLE SCLEROSIS
     Dosage: 24 MG, QDX3
     Route: 042
     Dates: start: 20100629, end: 20100701

REACTIONS (1)
  - PLEURISY [None]
